FAERS Safety Report 6224462-2 (Version None)
Quarter: 2009Q2

REPORT INFORMATION
  Report Type: 
  Country: None (occurrence: None)
  Receive Date: 20090612
  Receipt Date: 20090320
  Transmission Date: 20091009
  Serious: No
  Sender: FDA-Public Use
  Company Number: US-ABBOTT-09P-163-0563780-00

PATIENT
  Sex: Female

DRUGS (6)
  1. HUMIRA [Suspect]
     Indication: RHEUMATOID ARTHRITIS
     Dates: start: 20090209
  2. PREDNISONE [Suspect]
     Indication: DRUG USE FOR UNKNOWN INDICATION
  3. PREDNISONE [Suspect]
  4. PREDNISONE [Suspect]
  5. ASACOL [Concomitant]
     Indication: DRUG USE FOR UNKNOWN INDICATION
  6. SOMA [Concomitant]
     Indication: DRUG USE FOR UNKNOWN INDICATION

REACTIONS (4)
  - FEELING JITTERY [None]
  - NERVOUSNESS [None]
  - OEDEMA PERIPHERAL [None]
  - RHEUMATOID NODULE [None]
